FAERS Safety Report 4449962-7 (Version None)
Quarter: 2004Q3

REPORT INFORMATION
  Report Type: 
  Country: None (occurrence: None)
  Receive Date: 20040915
  Receipt Date: 20040908
  Transmission Date: 20050211
  Serious: Yes (Death)
  Sender: FDA-Public Use
  Company Number: PHBS2004CN11958

PATIENT
  Age: 11 Year
  Sex: Male

DRUGS (2)
  1. CYCLOSPORINE [Suspect]
     Indication: APLASTIC ANAEMIA
     Dosage: 50 MG, TID
     Dates: start: 20010101
  2. STANOZOLOL [Concomitant]
     Indication: APLASTIC ANAEMIA
     Dosage: 2 MG, TID
     Dates: start: 20010101

REACTIONS (12)
  - ACUTE LYMPHOCYTIC LEUKAEMIA [None]
  - ALANINE AMINOTRANSFERASE INCREASED [None]
  - ALPHA HYDROXYBUTYRATE DEHYDROGENASE INCREASED [None]
  - BLAST CELLS PRESENT [None]
  - BLOOD LACTATE DEHYDROGENASE INCREASED [None]
  - CENTRAL NERVOUS SYSTEM NEOPLASM [None]
  - ENCEPHALOPATHY [None]
  - HEPATOSPLENOMEGALY [None]
  - LEUKAEMIA RECURRENT [None]
  - LYMPHADENOPATHY [None]
  - PAIN IN EXTREMITY [None]
  - WHITE BLOOD CELL COUNT INCREASED [None]
